FAERS Safety Report 8616762-3 (Version None)
Quarter: 2012Q3

REPORT INFORMATION
  Report Type: 
  Country: None (occurrence: None)
  Receive Date: 20120823
  Receipt Date: 20120820
  Transmission Date: 20120928
  Serious: Yes (Hospitalization, Other)
  Sender: FDA-Public Use
  Company Number: US-009507513-1204USA00646

PATIENT

DRUGS (14)
  1. BONIVA [Suspect]
     Indication: OSTEOPOROSIS
     Dosage: 150 MG, UNK
     Dates: start: 20070222, end: 20080521
  2. CALCIUM (UNSPECIFIED) [Concomitant]
     Dosage: 600-3000 MG, QD
     Dates: start: 19920101
  3. FOSAMAX [Suspect]
     Indication: GASTROOESOPHAGEAL REFLUX DISEASE
     Dosage: 70 MG, QW
     Route: 048
     Dates: start: 20040527
  4. VITAMIN D [Concomitant]
     Dosage: 1000 MG, QD
     Dates: start: 19920101
  5. ASCORBIC ACID [Concomitant]
     Dosage: 1000 IU, UNK
     Dates: start: 19920101
  6. FOSAMAX [Suspect]
     Indication: OSTEOPOROSIS
     Route: 048
     Dates: end: 20100801
  7. PREVACID [Concomitant]
     Indication: GASTROOESOPHAGEAL REFLUX DISEASE
  8. PREMPRO [Concomitant]
     Indication: HORMONE REPLACEMENT THERAPY
  9. OMEGA-3-ACID ETHYL ESTERS [Concomitant]
     Dosage: 3000 MG, UNK
     Dates: start: 19920101
  10. VITAMIN E [Concomitant]
     Dosage: 100 MG, UNK
     Dates: start: 19920101
  11. MAGNESIUM (UNSPECIFIED) (+) ZINC (UNSPECIFIED) [Concomitant]
     Dosage: 600 MG, UNK
     Dates: start: 19920101
  12. CHONDROITIN SULFATE SODIUM (+) GLUCOSAMINE SULFATE [Concomitant]
     Dosage: UNK, BID
     Dates: start: 19920101
  13. ALENDRONATE SODIUM [Suspect]
     Indication: OSTEOPOROSIS
     Dosage: 70 MG QW
     Route: 048
     Dates: start: 20081001, end: 20090731
  14. ALENDRONATE SODIUM [Suspect]
     Dosage: 70 MG QW
     Route: 048
     Dates: start: 20091027, end: 20100513

REACTIONS (28)
  - CAROTID PULSE ABNORMAL [None]
  - CHRONIC OBSTRUCTIVE PULMONARY DISEASE [None]
  - VERTEBRAL FORAMINAL STENOSIS [None]
  - RECTOCELE [None]
  - ANAEMIA POSTOPERATIVE [None]
  - INTERVERTEBRAL DISC DISORDER [None]
  - CYST [None]
  - BRADYCARDIA [None]
  - UTERINE PROLAPSE [None]
  - BENIGN BREAST LUMP REMOVAL [None]
  - HYPERTENSION [None]
  - LOW TURNOVER OSTEOPATHY [None]
  - MITRAL VALVE INCOMPETENCE [None]
  - OSTEOARTHRITIS [None]
  - SPONDYLOLISTHESIS [None]
  - NAUSEA [None]
  - VOMITING [None]
  - CYSTITIS [None]
  - UPPER RESPIRATORY TRACT INFECTION [None]
  - DYSLIPIDAEMIA [None]
  - FEMUR FRACTURE [None]
  - PSORIASIS [None]
  - HYPERTONIC BLADDER [None]
  - RADICULOPATHY [None]
  - CYSTOCELE [None]
  - POLLAKIURIA [None]
  - OEDEMA PERIPHERAL [None]
  - ARTHRITIS [None]
